FAERS Safety Report 17049459 (Version 1)
Quarter: 2019Q4

REPORT INFORMATION
  Report Type: Spontaneous
  Country: US (occurrence: US)
  Receive Date: 20191119
  Receipt Date: 20191119
  Transmission Date: 20200122
  Serious: Yes (Death)
  Sender: FDA-Public Use
  Company Number: None

PATIENT
  Sex: Female

DRUGS (1)
  1. CLOPIDOGREL [Suspect]
     Active Substance: CLOPIDOGREL BISULFATE

REACTIONS (5)
  - Cerebral haemorrhage [None]
  - Subarachnoid haemorrhage [None]
  - Porphyria acute [None]
  - Arteriovenous malformation [None]
  - Intraventricular haemorrhage [None]
